FAERS Safety Report 9262907 (Version 1)
Quarter: 2013Q2

REPORT INFORMATION
  Report Type: Spontaneous
  Country: BR (occurrence: BR)
  Receive Date: 20130430
  Receipt Date: 20130430
  Transmission Date: 20140414
  Serious: Yes (Other)
  Sender: FDA-Public Use
  Company Number: BR-PFIZER INC-2013131261

PATIENT
  Age: 83 Year
  Sex: Female

DRUGS (1)
  1. FRONTAL [Suspect]
     Indication: DEPRESSION
     Dosage: 0.5 MG, 1X/DAY (ONE TABLET ONCE A DAY)
     Dates: start: 2008

REACTIONS (3)
  - Cataract [Unknown]
  - Osteoarthritis [Not Recovered/Not Resolved]
  - Off label use [Unknown]
